FAERS Safety Report 25848388 (Version 1)
Quarter: 2025Q3

REPORT INFORMATION
  Report Type: Spontaneous
  Country: US (occurrence: US)
  Receive Date: 20250925
  Receipt Date: 20250925
  Transmission Date: 20251020
  Serious: Yes (Other)
  Sender: MERCK SHARP & DOHME LLC
  Company Number: US-009507513-2332780

PATIENT
  Age: 70 Year
  Sex: Male

DRUGS (2)
  1. KEYTRUDA [Suspect]
     Active Substance: PEMBROLIZUMAB
     Indication: Malignant melanoma of sites other than skin
     Dates: start: 202307, end: 2025
  2. LENVIMA [Suspect]
     Active Substance: LENVATINIB
     Indication: Malignant melanoma of sites other than skin
     Dates: start: 202307

REACTIONS (3)
  - Malignant neoplasm progression [Not Recovered/Not Resolved]
  - Product use issue [Unknown]
  - Therapy partial responder [Unknown]
